FAERS Safety Report 8694826 (Version 3)
Quarter: 2012Q4

REPORT INFORMATION
  Report Type: 
  Country: JP (occurrence: JP)
  Receive Date: 20120731
  Receipt Date: 20121213
  Transmission Date: 20130627
  Serious: Yes (Other)
  Sender: FDA-Public Use
  Company Number: JP-009507513-1207JPN010160

PATIENT
  Age: 65 Year
  Sex: Female
  Weight: 49 kg

DRUGS (16)
  1. PEGINTRON [Suspect]
     Indication: CHRONIC HEPATITIS C
     Dosage: 1.2 Microgram per kilogram, qw
     Route: 058
     Dates: start: 20120508, end: 20120604
  2. PEGINTRON [Suspect]
     Dosage: 1.5 Microgram per kilogram, qw
     Route: 058
  3. PEGINTRON [Suspect]
     Dosage: 1.2 Microgram per kilogram, UNK
     Route: 058
     Dates: end: 20121022
  4. REBETOL [Suspect]
     Indication: CHRONIC HEPATITIS C
     Dosage: 400 mg, Once
     Route: 048
     Dates: start: 20120508, end: 20120527
  5. REBETOL [Suspect]
     Dosage: 200 mg, qd
     Route: 048
     Dates: start: 20120528, end: 20120611
  6. REBETOL [Suspect]
     Dosage: 200 mg, qd
     Route: 048
  7. REBETOL [Suspect]
     Dosage: 400 mg, qd
     Route: 048
     Dates: start: 20120903, end: 20121022
  8. TELAVIC [Suspect]
     Indication: CHRONIC HEPATITIS C
     Dosage: 1500 mg, qd
     Route: 048
     Dates: start: 20120508, end: 20120603
  9. TELAVIC [Suspect]
     Dosage: 1000 mg, qd
     Route: 048
     Dates: start: 20120604, end: 20120611
  10. TELAVIC [Suspect]
     Dosage: 1000, mg, qd
     Route: 048
     Dates: end: 20120806
  11. LIVALO [Concomitant]
     Indication: HYPERLIPIDAEMIA
     Dosage: 1 mg, qd
     Route: 048
  12. EPADEL S [Concomitant]
     Indication: HYPERLIPIDAEMIA
     Dosage: 1800 mg, qd
     Route: 048
  13. FEROTYM [Concomitant]
     Indication: IRON DEFICIENCY ANAEMIA
     Dosage: 100 mg, qd
     Route: 048
  14. CLARITIN REDITABS TABLETS 10 MG [Concomitant]
     Indication: PROPHYLAXIS
     Dosage: 10 mg, qd
     Route: 048
  15. [COMPOSITION UNSPECIFIED] [Concomitant]
     Indication: GASTRITIS
     Dosage: 150 mg, qd
     Route: 048
     Dates: start: 20120625
  16. PARIET [Concomitant]
     Indication: GASTROOESOPHAGEAL REFLUX DISEASE
     Dosage: 10 mg, qd
     Route: 048
     Dates: start: 20120625

REACTIONS (3)
  - Anaemia [Not Recovered/Not Resolved]
  - Anaemia [Not Recovered/Not Resolved]
  - Anaemia [Not Recovered/Not Resolved]
